FAERS Safety Report 13048693 (Version 1)
Quarter: 2016Q4

REPORT INFORMATION
  Report Type: Spontaneous
  Country: US (occurrence: US)
  Receive Date: 20161220
  Receipt Date: 20161220
  Transmission Date: 20170207
  Serious: Yes (Hospitalization)
  Sender: FDA-Public Use
  Company Number: None

PATIENT
  Age: 63 Year
  Sex: Male
  Weight: 77.3 kg

DRUGS (1)
  1. ERBITUX [Suspect]
     Active Substance: CETUXIMAB
     Indication: COLORECTAL CANCER METASTATIC
     Route: 042
     Dates: end: 20161202

REACTIONS (7)
  - Loss of consciousness [None]
  - Lethargy [None]
  - Nausea [None]
  - Tachycardia [None]
  - Dyspnoea [None]
  - Mental status changes [None]
  - Respiratory distress [None]

NARRATIVE: CASE EVENT DATE: 20161201
